FAERS Safety Report 6059538-6 (Version None)
Quarter: 2009Q1

REPORT INFORMATION
  Report Type: 
  Country: None (occurrence: None)
  Receive Date: 20090130
  Receipt Date: 20090120
  Transmission Date: 20090719
  Serious: Yes (Hospitalization)
  Sender: FDA-Public Use
  Company Number: FR-WYE-H07797409

PATIENT
  Sex: Male

DRUGS (7)
  1. EUPANTOL [Suspect]
     Route: 048
     Dates: start: 20081125, end: 20081217
  2. SINTROM [Suspect]
     Route: 048
  3. AMLOR [Suspect]
     Route: 048
  4. LEVOTHYROXINE [Suspect]
     Dosage: 75 MCG DAILY
     Route: 048
  5. MIANSERIN [Suspect]
     Route: 048
     Dates: start: 20050101, end: 20080601
  6. MIANSERIN [Suspect]
     Route: 048
     Dates: start: 20080901, end: 20081216
  7. ALLOPURINOL [Suspect]
     Route: 048
     Dates: start: 20000101, end: 20081217

REACTIONS (8)
  - AGRANULOCYTOSIS [None]
  - ASTHENIA [None]
  - DYSPNOEA EXERTIONAL [None]
  - HEART SOUNDS ABNORMAL [None]
  - PALLOR [None]
  - PRURITUS [None]
  - PYREXIA [None]
  - SKIN LESION [None]
